FAERS Safety Report 6956424-1 (Version None)
Quarter: 2010Q3

REPORT INFORMATION
  Report Type: 
  Country: None (occurrence: None)
  Receive Date: 20100830
  Receipt Date: 20100820
  Transmission Date: 20110219
  Serious: Yes (Other)
  Sender: FDA-Public Use
  Company Number: B0671432A

PATIENT

DRUGS (15)
  1. SERETIDE [Suspect]
     Indication: COUGH
     Dosage: 500MCG PER DAY
     Route: 055
     Dates: start: 20100802, end: 20100806
  2. HUSCODE [Concomitant]
     Indication: COUGH
     Dosage: 6IUAX PER DAY
     Route: 048
     Dates: start: 20100720, end: 20100820
  3. THEOLONG [Concomitant]
     Indication: COUGH
     Dosage: 200MG PER DAY
     Route: 048
     Dates: start: 20100720, end: 20100820
  4. KIPRES [Concomitant]
     Indication: COUGH
     Dosage: 5MG PER DAY
     Route: 048
     Dates: start: 20100720
  5. RUEFRIEN [Concomitant]
     Dosage: 2.1G PER DAY
     Route: 048
  6. MIYA BM [Concomitant]
     Dosage: 2.1G PER DAY
     Route: 048
  7. MAXTASE [Concomitant]
     Dosage: 3IUAX PER DAY
     Route: 048
  8. SINTROM [Concomitant]
     Dosage: 3IUAX PER DAY
     Route: 048
  9. CLARITIN [Concomitant]
     Dosage: 1IUAX PER DAY
     Route: 048
  10. AMLODIPINE BESYLATE [Concomitant]
     Dosage: 5MG PER DAY
     Route: 048
  11. OLMESARTAN MEDOXOMIL [Concomitant]
     Dosage: 20MG PER DAY
     Route: 048
  12. MAGNESIUM OXIDE [Concomitant]
     Dosage: 1G PER DAY
     Route: 048
  13. MYSLEE [Concomitant]
     Dosage: 10MG PER DAY
     Route: 048
  14. PARIET [Concomitant]
     Dosage: 20MG PER DAY
     Route: 048
  15. CRESTOR [Concomitant]
     Dosage: 2.5MG PER DAY
     Route: 048

REACTIONS (2)
  - HALLUCINATION [None]
  - HALLUCINATION, AUDITORY [None]
